FAERS Safety Report 17595418 (Version 1)
Quarter: 2020Q1

REPORT INFORMATION
  Report Type: Report from Study
  Country: CO (occurrence: CO)
  Receive Date: 20200329
  Receipt Date: 20200329
  Transmission Date: 20200409
  Serious: Yes (Hospitalization, Other)
  Sender: FDA-Public Use
  Company Number: CO-ROCHE-2477764

PATIENT
  Sex: Female

DRUGS (1)
  1. RITUXIMAB. [Suspect]
     Active Substance: RITUXIMAB
     Indication: PRODUCT USED FOR UNKNOWN INDICATION
     Route: 065

REACTIONS (22)
  - Discomfort [Unknown]
  - Pain [Unknown]
  - Fibrosis [Unknown]
  - Herpes zoster [Unknown]
  - Rheumatoid lung [Unknown]
  - Blood creatinine abnormal [Unknown]
  - Malaise [Unknown]
  - Haemoglobin decreased [Unknown]
  - Influenza [Unknown]
  - Elephantiasis [Unknown]
  - Diabetes mellitus [Unknown]
  - Hypertension [Unknown]
  - Immunodeficiency [Unknown]
  - Pain in extremity [Unknown]
  - Gastroenteritis [Unknown]
  - Ill-defined disorder [Unknown]
  - Gait disturbance [Unknown]
  - Vomiting [Unknown]
  - Asthenia [Unknown]
  - Fibromyalgia [Unknown]
  - Diarrhoea [Unknown]
  - Asthma [Unknown]
